FAERS Safety Report 18910956 (Version 3)
Quarter: 2021Q1

REPORT INFORMATION
  Report Type: Report from Study
  Country: None (occurrence: US)
  Receive Date: 20210218
  Receipt Date: 20210330
  Transmission Date: 20210420
  Serious: Yes (Other)
  Sender: FDA-Public Use
  Company Number: US-ABBVIE-21K-163-3746774-00

PATIENT
  Age: 56 Year
  Sex: Male
  Weight: 97.16 kg

DRUGS (4)
  1. HUMIRA [Suspect]
     Active Substance: ADALIMUMAB
     Indication: COLITIS ULCERATIVE
     Dosage: CITRATE FREE
     Route: 058
     Dates: start: 2018
  2. LISINOPRIL. [Concomitant]
     Active Substance: LISINOPRIL
     Indication: PRODUCT USED FOR UNKNOWN INDICATION
  3. COVID?19 VACCINE NOS. [Suspect]
     Active Substance: COVID-19 VACCINE NOS
     Indication: COVID-19 IMMUNISATION
     Route: 030
  4. ELIQUIS [Concomitant]
     Active Substance: APIXABAN
     Indication: BLOOD CHOLESTEROL INCREASED

REACTIONS (10)
  - Neuropathy peripheral [Unknown]
  - SARS-CoV-2 test positive [Recovering/Resolving]
  - Muscle rupture [Recovering/Resolving]
  - Illness [Recovered/Resolved]
  - Rash [Recovered/Resolved]
  - Diabetes mellitus [Not Recovered/Not Resolved]
  - Fatigue [Recovering/Resolving]
  - Weight increased [Recovering/Resolving]
  - COVID-19 [Recovered/Resolved]
  - Blood glucose increased [Recovering/Resolving]

NARRATIVE: CASE EVENT DATE: 201806
